FAERS Safety Report 7019898-6 (Version None)
Quarter: 2010Q3

REPORT INFORMATION
  Report Type: 
  Country: None (occurrence: None)
  Receive Date: 20100929
  Receipt Date: 20100924
  Transmission Date: 20110219
  Serious: Yes (Other)
  Sender: FDA-Public Use
  Company Number: US-BAYER-200939753NA

PATIENT
  Age: 17 Year
  Sex: Female

DRUGS (1)
  1. YAZ [Suspect]
     Indication: MOOD ALTERED
     Route: 048
     Dates: start: 20080901, end: 20091215

REACTIONS (4)
  - AFFECTIVE DISORDER [None]
  - DEPRESSION [None]
  - METRORRHAGIA [None]
  - MOOD SWINGS [None]
